FAERS Safety Report 6708440-2 (Version None)
Quarter: 2010Q2

REPORT INFORMATION
  Report Type: 
  Country: None (occurrence: None)
  Receive Date: 20100503
  Receipt Date: 20090610
  Transmission Date: 20101027
  Serious: No
  Sender: FDA-Public Use
  Company Number: US-ASTRAZENECA-2009UW14884

PATIENT
  Age: 66 Year
  Sex: Female

DRUGS (9)
  1. NEXIUM [Suspect]
     Indication: GASTROOESOPHAGEAL REFLUX DISEASE
     Dosage: 1 CAPSULE
     Route: 048
     Dates: start: 20090609
  2. PROMETHAZINE [Concomitant]
  3. ATENOLOL [Concomitant]
  4. CRESTOR [Concomitant]
  5. EFFEXOR [Concomitant]
  6. ESTROVEN [Concomitant]
  7. GLUCOSAMINE CHONDROITIN [Concomitant]
  8. CALCIUM W/ VIT D [Concomitant]
  9. FISH OIL [Concomitant]

REACTIONS (2)
  - MALAISE [None]
  - SLEEP DISORDER [None]
